FAERS Safety Report 6988351-8 (Version None)
Quarter: 2010Q3

REPORT INFORMATION
  Report Type: 
  Country: None (occurrence: None)
  Receive Date: 20100830
  Receipt Date: 20100528
  Transmission Date: 20110219
  Serious: No
  Sender: FDA-Public Use
  Company Number: 2010034497

PATIENT
  Sex: Female

DRUGS (4)
  1. TOVIAZ [Suspect]
     Indication: HYPERTONIC BLADDER
     Dosage: 4 MG, DAILY,  ORAL
     Route: 048
     Dates: start: 20100310, end: 20100314
  2. LEVOTHYROXINE SODIUM [Concomitant]
  3. LOVASTATIN [Concomitant]
  4. ARICEPT [Concomitant]

REACTIONS (4)
  - DIZZINESS [None]
  - DRY EYE [None]
  - DRY MOUTH [None]
  - HEADACHE [None]
